FAERS Safety Report 24588256 (Version 1)
Quarter: 2024Q4

REPORT INFORMATION
  Report Type: Report from Study
  Country: CA (occurrence: CA)
  Receive Date: 20241107
  Receipt Date: 20241107
  Transmission Date: 20250115
  Serious: Yes (Other)
  Sender: ROCHE
  Company Number: CA-002147023-NVSC2023CA150780

PATIENT
  Age: 15 Year
  Sex: Male

DRUGS (8)
  1. XOLAIR [Suspect]
     Active Substance: OMALIZUMAB
     Indication: Chronic spontaneous urticaria
     Dosage: 300 MG, EVERY 4 WEEKS
     Route: 050
     Dates: start: 20230227
  2. XOLAIR [Suspect]
     Active Substance: OMALIZUMAB
     Dosage: UNK ( 6 WEEKS)
     Route: 065
  3. XOLAIR [Suspect]
     Active Substance: OMALIZUMAB
     Dosage: 300 MG, 6 WEEKS
     Route: 050
  4. XOLAIR [Suspect]
     Active Substance: OMALIZUMAB
     Dosage: 300 MG, 6 WEEKS
     Route: 050
     Dates: start: 20240813
  5. VENTOLIN [Concomitant]
     Active Substance: ALBUTEROL SULFATE
     Indication: Chronic spontaneous urticaria
     Dosage: 1 DOSAGE FORM, PRN
     Route: 050
     Dates: start: 201703
  6. BILASTINE [Concomitant]
     Active Substance: BILASTINE
     Indication: Product used for unknown indication
     Dosage: 4 DOSAGE FORM, QD
     Route: 050
     Dates: start: 2022
  7. RUPATADINE FUMARATE [Concomitant]
     Active Substance: RUPATADINE FUMARATE
     Indication: Chronic spontaneous urticaria
     Dosage: 2 DOSAGE FORM, QD
     Route: 050
     Dates: start: 201904
  8. EPINEPHRINE [Concomitant]
     Active Substance: EPINEPHRINE
     Indication: Product used for unknown indication
     Dosage: UNK
     Route: 065
     Dates: start: 2019

REACTIONS (10)
  - Anaphylactic reaction [Unknown]
  - Abdominal discomfort [Recovered/Resolved]
  - Pharyngeal swelling [Unknown]
  - Dyspnoea [Unknown]
  - Tryptase increased [Unknown]
  - Urticaria [Unknown]
  - Pruritus [Unknown]
  - Off label use [Unknown]
  - Nasal congestion [Not Recovered/Not Resolved]
  - Nonspecific reaction [Unknown]

NARRATIVE: CASE EVENT DATE: 20230815
